FAERS Safety Report 15620481 (Version 1)
Quarter: 2018Q4

REPORT INFORMATION
  Report Type: Spontaneous
  Country: FR (occurrence: FR)
  Receive Date: 20181115
  Receipt Date: 20181115
  Transmission Date: 20190205
  Serious: Yes (Hospitalization)
  Sender: FDA-Public Use
  Company Number: FR-ROCHE-2215816

PATIENT
  Age: 10 Year
  Sex: Female
  Weight: 29 kg

DRUGS (3)
  1. VALIUM [Suspect]
     Active Substance: DIAZEPAM
     Indication: GENERALISED TONIC-CLONIC SEIZURE
     Route: 042
     Dates: start: 20181013, end: 20181013
  2. RIVOTRIL [Suspect]
     Active Substance: CLONAZEPAM
     Indication: GENERALISED TONIC-CLONIC SEIZURE
     Dosage: 1 MG/1 ML
     Route: 042
     Dates: start: 20181013, end: 20181013
  3. GARDENAL [Suspect]
     Active Substance: PHENOBARBITAL
     Indication: GENERALISED TONIC-CLONIC SEIZURE
     Route: 042
     Dates: start: 20181013, end: 20181013

REACTIONS (1)
  - Fixed eruption [Recovered/Resolved]

NARRATIVE: CASE EVENT DATE: 20181014
